FAERS Safety Report 9587626 (Version 2)
Quarter: 2013Q4

REPORT INFORMATION
  Report Type: Spontaneous
  Country: US (occurrence: US)
  Receive Date: 20131003
  Receipt Date: 20131003
  Transmission Date: 20140711
  Serious: Yes (Other)
  Sender: FDA-Public Use
  Company Number: US-COVIDIEN/TYCO HEALTHCARE/MALLINCKRODT-T201303783

PATIENT
  Age: 52 Year
  Sex: Male
  Weight: 77.98 kg

DRUGS (3)
  1. EXALGO EXTENDED RELEASE [Suspect]
     Indication: PAIN
     Dosage: 12 MG, X 2
     Route: 048
     Dates: start: 20130709
  2. EXALGO EXTENDED RELEASE [Suspect]
     Dosage: 36 MG, QD
     Dates: start: 2013, end: 201307
  3. MORPHINE [Concomitant]
     Indication: BREAKTHROUGH PAIN
     Dosage: 15 MG, PRN
     Route: 048
     Dates: start: 201305

REACTIONS (2)
  - Drug withdrawal syndrome [Recovered/Resolved]
  - Confusional state [Recovered/Resolved]
